FAERS Safety Report 18958000 (Version 1)
Quarter: 2021Q1

REPORT INFORMATION
  Report Type: Report from Study
  Country: US (occurrence: US)
  Receive Date: 20210302
  Receipt Date: 20210302
  Transmission Date: 20210420
  Serious: Yes (Hospitalization, Other)
  Sender: FDA-Public Use
  Company Number: US-GILEAD-2021-0518362

PATIENT
  Age: 49 Year
  Sex: Male

DRUGS (36)
  1. AZTREONAM LYSINE [Suspect]
     Active Substance: AZTREONAM LYSINE
     Indication: CYSTIC FIBROSIS LUNG
     Dosage: 75 MG, TID, 28 DAYS ON, 28 DAYS OFF
     Route: 055
     Dates: start: 20140429
  2. AZITHROMYCIN ANHYDROUS. [Concomitant]
     Active Substance: AZITHROMYCIN ANHYDROUS
  3. FLUTICASONE. [Concomitant]
     Active Substance: FLUTICASONE
  4. MAGNESIUM OXIDE. [Concomitant]
     Active Substance: MAGNESIUM OXIDE
  5. DAPSONE. [Concomitant]
     Active Substance: DAPSONE
  6. ACYCLOVIR [ACICLOVIR] [Concomitant]
     Active Substance: ACYCLOVIR
  7. FUROSEMIDE. [Concomitant]
     Active Substance: FUROSEMIDE
  8. OYSTER SHELL [Concomitant]
     Active Substance: OSTREA EDULIS SHELL
  9. POLYETHYLENE GLYCOL [MACROGOL] [Concomitant]
     Active Substance: POLYETHYLENE GLYCOLS
  10. VIOS PRO LC MIS [Concomitant]
  11. COMP AIR NEB [Concomitant]
  12. FLUOROURACIL. [Concomitant]
     Active Substance: FLUOROURACIL
  13. ZENPEP [Concomitant]
     Active Substance: PANCRELIPASE AMYLASE\PANCRELIPASE LIPASE\PANCRELIPASE PROTEASE
  14. ACITRETIN. [Concomitant]
     Active Substance: ACITRETIN
     Indication: CYSTIC FIBROSIS LUNG
  15. DOK [Concomitant]
     Active Substance: DOCUSATE SODIUM
  16. FLOVENT HFA [Concomitant]
     Active Substance: FLUTICASONE PROPIONATE
  17. MONTELUKAST [Concomitant]
     Active Substance: MONTELUKAST SODIUM
  18. SIMVASTATIN. [Concomitant]
     Active Substance: SIMVASTATIN
  19. TOBRAMYCIN. [Concomitant]
     Active Substance: TOBRAMYCIN
  20. ALLOPURINOL. [Concomitant]
     Active Substance: ALLOPURINOL
  21. AMOXICILLIN. [Concomitant]
     Active Substance: AMOXICILLIN
  22. CLONIDINE. [Concomitant]
     Active Substance: CLONIDINE
  23. OMEPRAZOLE. [Concomitant]
     Active Substance: OMEPRAZOLE
  24. TACROLIMUS. [Concomitant]
     Active Substance: TACROLIMUS
  25. CITALOPRAM [Concomitant]
     Active Substance: CITALOPRAM HYDROBROMIDE
  26. DOXEPIN HYDROCHLORIDE. [Concomitant]
     Active Substance: DOXEPIN HYDROCHLORIDE
  27. ESCITALOPRAM [Concomitant]
     Active Substance: ESCITALOPRAM OXALATE
  28. FENOFIBRATE. [Concomitant]
     Active Substance: FENOFIBRATE
  29. ITRACONAZOLE. [Concomitant]
     Active Substance: ITRACONAZOLE
  30. METOPROLOL SUCCINATE. [Concomitant]
     Active Substance: METOPROLOL SUCCINATE
  31. ATOVAQUONE. [Concomitant]
     Active Substance: ATOVAQUONE
  32. POSACONAZOLE [Concomitant]
     Active Substance: POSACONAZOLE
  33. DILTIAZEM. [Concomitant]
     Active Substance: DILTIAZEM
  34. HYDRALAZINE [Concomitant]
     Active Substance: HYDRALAZINE HYDROCHLORIDE
  35. PREDNISONE. [Concomitant]
     Active Substance: PREDNISONE
  36. TOBI PODHALER [Concomitant]
     Active Substance: TOBRAMYCIN

REACTIONS (3)
  - Dyspnoea [Not Recovered/Not Resolved]
  - Pneumonia [Not Recovered/Not Resolved]
  - Red blood cell abnormality [Not Recovered/Not Resolved]

NARRATIVE: CASE EVENT DATE: 202102
